FAERS Safety Report 5102956-0 (Version None)
Quarter: 2006Q3

REPORT INFORMATION
  Report Type: 
  Country: None (occurrence: None)
  Receive Date: 20060907
  Receipt Date: 20060824
  Transmission Date: 20061208
  Serious: Yes (Hospitalization)
  Sender: FDA-Public Use
  Company Number: CH200606001758

PATIENT
  Age: 78 Year
  Sex: Female

DRUGS (6)
  1. ZYPREXA [Suspect]
     Dosage: SEE IMAGE
     Route: 048
     Dates: start: 20060314
  2. ZYPREXA [Suspect]
     Dosage: SEE IMAGE
     Route: 048
     Dates: start: 20060322
  3. EXELON /SCH/ (RIVASTIGMINE TARTRATE) [Concomitant]
  4. TIATRAL /00002701/ (ACETYLSALICYLIC ACID) [Concomitant]
  5. SERTRALINE [Concomitant]
  6. REMERON [Concomitant]

REACTIONS (8)
  - BLOOD LACTATE DEHYDROGENASE INCREASED [None]
  - C-REACTIVE PROTEIN INCREASED [None]
  - DRUG INTERACTION [None]
  - FALL [None]
  - FEMUR FRACTURE [None]
  - PLATELET COUNT INCREASED [None]
  - RED BLOOD CELL SEDIMENTATION RATE INCREASED [None]
  - SEDATION [None]
